FAERS Safety Report 4853542-9 (Version None)
Quarter: 2005Q4

REPORT INFORMATION
  Report Type: 
  Country: None (occurrence: None)
  Receive Date: 20051214
  Receipt Date: 20051209
  Transmission Date: 20060501
  Serious: Yes (Hospitalization, Other)
  Sender: FDA-Public Use
  Company Number: US-JNJFOC-20050401987

PATIENT
  Sex: Male

DRUGS (32)
  1. DURAGESIC-100 [Suspect]
     Route: 062
  2. DURAGESIC-100 [Suspect]
     Route: 062
  3. DURAGESIC-100 [Suspect]
     Dosage: TWO 50 UG/HR PATCHES
     Route: 062
  4. DURAGESIC-100 [Suspect]
     Route: 062
  5. DURAGESIC-100 [Suspect]
     Route: 062
  6. DURAGESIC-100 [Suspect]
     Route: 062
  7. OXYCONTIN [Concomitant]
     Route: 048
  8. ALTACE [Concomitant]
     Route: 048
  9. CARDIZEM [Concomitant]
     Route: 048
  10. CLONIDINE [Concomitant]
     Route: 048
  11. POTASSIUM CHLORIDE [Concomitant]
     Route: 048
  12. CIMETIDINE [Concomitant]
     Route: 048
  13. RISPERDAL [Concomitant]
     Route: 048
  14. LEXAPRO [Concomitant]
     Route: 048
  15. ASPIRIN [Concomitant]
     Route: 048
  16. ZESTRIL [Concomitant]
     Route: 048
  17. NASONEX [Concomitant]
  18. ALBUTEROL [Concomitant]
  19. MULTI-VITAMIN [Concomitant]
  20. MULTI-VITAMIN [Concomitant]
  21. MULTI-VITAMIN [Concomitant]
  22. MULTI-VITAMIN [Concomitant]
  23. MULTI-VITAMIN [Concomitant]
  24. MULTI-VITAMIN [Concomitant]
  25. MULTI-VITAMIN [Concomitant]
  26. MULTI-VITAMIN [Concomitant]
  27. PROTONIX [Concomitant]
     Route: 048
  28. HYDRALAZINE [Concomitant]
     Route: 048
  29. NITORGLYCERIN [Concomitant]
     Route: 062
  30. ACTONEL [Concomitant]
  31. LABETALOL [Concomitant]
     Route: 048
  32. CALCIUM SUPPLEMENT [Concomitant]
     Route: 048

REACTIONS (36)
  - ABDOMINAL PAIN [None]
  - ACUTE PSYCHOSIS [None]
  - ANGIONEUROTIC OEDEMA [None]
  - ASTHENIA [None]
  - BACK INJURY [None]
  - BACK PAIN [None]
  - BENIGN PROSTATIC HYPERPLASIA [None]
  - BRONCHOSPASM [None]
  - DELUSION [None]
  - DEPRESSION [None]
  - DEVICE FAILURE [None]
  - DIARRHOEA [None]
  - DYSPNOEA [None]
  - EXOSTOSIS [None]
  - FAECAL INCONTINENCE [None]
  - FALL [None]
  - GASTROENTERITIS [None]
  - HALLUCINATION, AUDITORY [None]
  - HEADACHE [None]
  - HOMICIDAL IDEATION [None]
  - HYPERHIDROSIS [None]
  - INSOMNIA [None]
  - MALAISE [None]
  - MALIGNANT HYPERTENSION [None]
  - MEMORY IMPAIRMENT [None]
  - MIGRAINE [None]
  - NAUSEA [None]
  - NEPHROSCLEROSIS [None]
  - PARANOIA [None]
  - PHARMACEUTICAL PRODUCT COMPLAINT [None]
  - PROSTATITIS [None]
  - SUICIDAL IDEATION [None]
  - THROAT TIGHTNESS [None]
  - TONGUE DISCOLOURATION [None]
  - URINARY INCONTINENCE [None]
  - VOMITING [None]
